FAERS Safety Report 6785780-2 (Version None)
Quarter: 2010Q2

REPORT INFORMATION
  Report Type: 
  Country: None (occurrence: None)
  Receive Date: 20100622
  Receipt Date: 20100622
  Transmission Date: 20101027
  Serious: Yes (Other)
  Sender: FDA-Public Use
  Company Number: None

PATIENT
  Sex: Female
  Weight: 53.6 kg

DRUGS (2)
  1. SYMBYAX [Suspect]
     Indication: BIPOLAR I DISORDER
     Dosage: 6/25 MG ONE TAB PO GTTS PO
     Route: 048
     Dates: start: 20100501
  2. ZYPREXA [Suspect]
     Dosage: 2.5 MG ONE TAB PO GTTS PO
     Route: 048
     Dates: start: 20100601

REACTIONS (1)
  - OEDEMA PERIPHERAL [None]
